FAERS Safety Report 9921950 (Version 3)
Quarter: 2014Q2

REPORT INFORMATION
  Report Type: Spontaneous
  Country: DK (occurrence: DK)
  Receive Date: 20140225
  Receipt Date: 20140401
  Transmission Date: 20141212
  Serious: Yes (Death, Hospitalization)
  Sender: FDA-Public Use
  Company Number: PHHY2014DK017758

PATIENT
  Age: 19 Year
  Sex: Female
  Weight: 68 kg

DRUGS (3)
  1. MALONETTA [Suspect]
     Indication: CONTRACEPTION
     Dosage: 1 DF, QD
     Route: 048
     Dates: start: 20130920
  2. VITAMIN D [Concomitant]
     Indication: VITAMIN D DEFICIENCY
     Dates: start: 20120112
  3. METFORMIN ACTAVIS [Concomitant]
     Indication: POLYCYSTIC OVARIES
     Dates: start: 20120131

REACTIONS (5)
  - Pulmonary embolism [Fatal]
  - Cardiac arrest [Fatal]
  - Deep vein thrombosis [Fatal]
  - Pelvic venous thrombosis [Fatal]
  - Dyspnoea [Unknown]
